FAERS Safety Report 17055161 (Version 2)
Quarter: 2019Q4

REPORT INFORMATION
  Report Type: Spontaneous
  Country: IT (occurrence: IT)
  Receive Date: 20191120
  Receipt Date: 20191217
  Transmission Date: 20200122
  Serious: Yes (Hospitalization, Other)
  Sender: FDA-Public Use
  Company Number: IT-MYLANLABS-2019M1112030

PATIENT
  Age: 36 Year
  Sex: Female

DRUGS (7)
  1. FLUVASTATIN [Suspect]
     Active Substance: FLUVASTATIN SODIUM
     Indication: TYPE IIA HYPERLIPIDAEMIA
     Dosage: UNK
  2. METHYLPREDNISOLONE. [Concomitant]
     Active Substance: METHYLPREDNISOLONE
     Indication: COGAN^S SYNDROME
     Dosage: 4 MG, QD
     Dates: start: 2000
  3. METHOTREXATE. [Concomitant]
     Active Substance: METHOTREXATE
     Indication: COGAN^S SYNDROME
     Dosage: 10 MG, QW
     Dates: start: 2000
  4. ATORVASTATIN [Suspect]
     Active Substance: ATORVASTATIN
     Indication: TYPE IIA HYPERLIPIDAEMIA
     Dosage: 20 MG
     Dates: start: 2001
  5. EZETIMIBE. [Suspect]
     Active Substance: EZETIMIBE
     Indication: TYPE IIA HYPERLIPIDAEMIA
     Dosage: UNK
  6. PANTOPRAZOLE [Concomitant]
     Active Substance: PANTOPRAZOLE
     Indication: COGAN^S SYNDROME
     Dosage: 20 MG, QD
     Dates: start: 2000
  7. SALICYLIC ACID. [Concomitant]
     Active Substance: SALICYLIC ACID
     Indication: COGAN^S SYNDROME
     Dosage: 100 MG, QD
     Dates: start: 2000

REACTIONS (6)
  - Rhabdomyolysis [Recovered/Resolved]
  - Acute kidney injury [Recovered/Resolved]
  - Drug intolerance [Recovered/Resolved]
  - Myoglobinuria [Recovered/Resolved]
  - Myalgia [Recovered/Resolved]
  - Blood creatine phosphokinase increased [Unknown]

NARRATIVE: CASE EVENT DATE: 2002
